FAERS Safety Report 5274979-2 (Version None)
Quarter: 2007Q1

REPORT INFORMATION
  Report Type: 
  Country: None (occurrence: None)
  Receive Date: 20061207
  Receipt Date: 20050118
  Transmission Date: 20070707
  Serious: Yes (Other)
  Sender: FDA-Public Use
  Company Number: 2004UW18083

PATIENT
  Age: 55 Year
  Sex: Female
  Weight: 131.5431 kg

DRUGS (7)
  1. TOPROL-XL [Suspect]
     Dosage: 200 MG PO
     Route: 048
     Dates: start: 20040201, end: 20040101
  2. TOPAMAX [Suspect]
     Dosage: 200 MG
  3. PAXIL [Concomitant]
  4. LASIX [Concomitant]
  5. POTASSIUM ACETATE [Concomitant]
  6. AVALIDE [Concomitant]
  7. INSULIN [Concomitant]

REACTIONS (13)
  - BLOOD GLUCOSE FLUCTUATION [None]
  - DEPRESSION [None]
  - DISTURBANCE IN ATTENTION [None]
  - DIZZINESS [None]
  - FATIGUE [None]
  - HEART RATE IRREGULAR [None]
  - IMPAIRED WORK ABILITY [None]
  - INSOMNIA [None]
  - MEDICATION ERROR [None]
  - MOOD SWINGS [None]
  - PALPITATIONS [None]
  - SOCIAL AVOIDANT BEHAVIOUR [None]
  - WEIGHT INCREASED [None]
